FAERS Safety Report 8699242 (Version 2)
Quarter: 2012Q4

REPORT INFORMATION
  Report Type: 
  Country: JP (occurrence: JP)
  Receive Date: 20120802
  Receipt Date: 20121008
  Transmission Date: 20130627
  Serious: Yes (Hospitalization)
  Sender: FDA-Public Use
  Company Number: JP-BAYER-2012-074847

PATIENT
  Age: 76 Year
  Sex: Female
  Weight: 33 kg

DRUGS (3)
  1. ADALAT [Suspect]
     Indication: BLOOD PRESSURE INCREASED
     Dosage: UNK
     Route: 048
     Dates: start: 20120210, end: 20120210
  2. GASTER [Concomitant]
     Indication: GASTROOESOPHAGEAL REFLUX DISEASE
     Dosage: Daily dose 40 mg
     Route: 048
  3. GASTROM [Concomitant]
     Indication: GASTROOESOPHAGEAL REFLUX DISEASE
     Dosage: Daily dose 3 g
     Route: 048

REACTIONS (1)
  - Stress cardiomyopathy [Recovering/Resolving]
